FAERS Safety Report 15049462 (Version 5)
Quarter: 2019Q1

REPORT INFORMATION
  Report Type: Spontaneous
  Country: US (occurrence: US)
  Receive Date: 20180622
  Receipt Date: 20190204
  Transmission Date: 20190417
  Serious: Yes (Other)
  Sender: FDA-Public Use
  Company Number: US-PFIZER INC-2018200947

PATIENT
  Age: 66 Year
  Sex: Female

DRUGS (1)
  1. IBRANCE [Suspect]
     Active Substance: PALBOCICLIB
     Indication: BREAST CANCER METASTATIC
     Dosage: 125 MG, CYCLIC[21 DAY ON THEN OFF 7 DAYS]
     Route: 048
     Dates: start: 20180614

REACTIONS (14)
  - Nasopharyngitis [Unknown]
  - Anxiety [Unknown]
  - Influenza [Unknown]
  - Herpes zoster [Unknown]
  - Nausea [Unknown]
  - Cognitive disorder [Unknown]
  - Stress [Unknown]
  - Overweight [Unknown]
  - Pneumonia [Unknown]
  - Laryngitis [Unknown]
  - Bronchitis [Unknown]
  - Speech disorder [Unknown]
  - Oral herpes [Unknown]
  - Hypoacusis [Unknown]

NARRATIVE: CASE EVENT DATE: 2018
